FAERS Safety Report 13273217 (Version 1)
Quarter: 2017Q1

REPORT INFORMATION
  Report Type: Spontaneous
  Country: US (occurrence: US)
  Receive Date: 20170227
  Receipt Date: 20170227
  Transmission Date: 20170428
  Serious: No
  Sender: FDA-Public Use
  Company Number: None

PATIENT
  Age: 72 Year
  Sex: Male
  Weight: 83.25 kg

DRUGS (1)
  1. SIMVASTATIN TABLETS USP [Suspect]
     Active Substance: SIMVASTATIN
     Indication: BLOOD CHOLESTEROL ABNORMAL
     Dosage: ?          QUANTITY:90 TABLET(S);?
     Route: 048
     Dates: start: 20161215, end: 20170220

REACTIONS (3)
  - Myalgia [None]
  - Muscular weakness [None]
  - Dysstasia [None]
